FAERS Safety Report 15376891 (Version 1)
Quarter: 2018Q3

REPORT INFORMATION
  Report Type: Spontaneous
  Country: AT (occurrence: AT)
  Receive Date: 20180913
  Receipt Date: 20180913
  Transmission Date: 20181010
  Serious: Yes (Hospitalization)
  Sender: FDA-Public Use
  Company Number: AT-ROCHE-2183268

PATIENT
  Age: 63 Year
  Sex: Male

DRUGS (1)
  1. ROACTEMRA [Suspect]
     Active Substance: TOCILIZUMAB
     Indication: RHEUMATOID ARTHRITIS
     Route: 042

REACTIONS (6)
  - Sepsis [Recovered/Resolved]
  - General physical health deterioration [Unknown]
  - C-reactive protein increased [Unknown]
  - Pneumonia [Recovered/Resolved]
  - Renal failure [Recovered/Resolved]
  - Infection [Unknown]
